FAERS Safety Report 5924095-9 (Version None)
Quarter: 2008Q4

REPORT INFORMATION
  Report Type: 
  Country: None (occurrence: None)
  Receive Date: 20081020
  Receipt Date: 20081007
  Transmission Date: 20090506
  Serious: Yes (Disabling)
  Sender: FDA-Public Use
  Company Number: FR-ROCHE-562007

PATIENT
  Sex: Male

DRUGS (2)
  1. PEGASYS [Suspect]
     Dosage: DOSE AND FREQUENCY AS PER PROTOCOL
     Route: 058
     Dates: start: 19990501, end: 20001001
  2. RIBAVIRIN [Suspect]
     Dosage: FREQUENCY AS PER PROTOCOL
     Route: 048
     Dates: start: 19990501, end: 20001001

REACTIONS (1)
  - MULTIPLE SCLEROSIS [None]
